FAERS Safety Report 5883680-3 (Version None)
Quarter: 2008Q3

REPORT INFORMATION
  Report Type: 
  Country: None (occurrence: None)
  Receive Date: 20080912
  Receipt Date: 20080912
  Transmission Date: 20090109
  Serious: Yes (Hospitalization)
  Sender: FDA-Public Use
  Company Number: None

PATIENT
  Sex: Female
  Weight: 56.2 kg

DRUGS (2)
  1. GEMCITABINE [Suspect]
     Indication: PANCREATIC CARCINOMA
     Dosage: 800 MG/M2 D1, D8 IV
     Dates: start: 20080821, end: 20080821
  2. CAPECITABINE [Suspect]
     Indication: PANCREATIC CARCINOMA
     Dosage: 375 MG/M2 D1-D14 PO
     Route: 048
     Dates: start: 20080821, end: 20080826

REACTIONS (1)
  - HAEMORRHAGIC STROKE [None]
